FAERS Safety Report 25817599 (Version 1)
Quarter: 2025Q3

REPORT INFORMATION
  Report Type: Spontaneous
  Country: CA (occurrence: CA)
  Receive Date: 20250918
  Receipt Date: 20250918
  Transmission Date: 20251020
  Serious: Yes (Other)
  Sender: JOHNSON AND JOHNSON
  Company Number: CA-JNJFOC-20250915574

PATIENT
  Age: 61 Year
  Sex: Male

DRUGS (1)
  1. USTEKINUMAB [Suspect]
     Active Substance: USTEKINUMAB
     Indication: Crohn^s disease
     Route: 058

REACTIONS (6)
  - Bronchitis [Unknown]
  - Ear infection [Unknown]
  - Oral herpes [Unknown]
  - Orchitis [Unknown]
  - Intentional product use issue [Unknown]
  - Intentional dose omission [Unknown]
